FAERS Safety Report 23551914 (Version 1)
Quarter: 2024Q1

REPORT INFORMATION
  Report Type: Spontaneous
  Country: US (occurrence: US)
  Receive Date: 20240222
  Receipt Date: 20240222
  Transmission Date: 20240409
  Serious: No
  Sender: FDA-Public Use
  Company Number: US-862174955-ML2024-00967

PATIENT
  Age: 79 Year
  Sex: Female
  Weight: 77.11 kg

DRUGS (5)
  1. KETOROLAC TROMETHAMINE [Suspect]
     Active Substance: KETOROLAC TROMETHAMINE
     Indication: Cataract operation
     Dosage: STARTED USING THE PRODUCT 01 DROP IN LEFT EYE, 04 TIMES A DAY ON 10-JAN-2024, JUST A DAY BEFORE THE
     Route: 047
     Dates: start: 20240110
  2. KETOROLAC TROMETHAMINE [Suspect]
     Active Substance: KETOROLAC TROMETHAMINE
     Dosage: THAT ON 25-JAN-2024, SHE HAD UNDERGONE SURGERY FOR THE RIGHT EYE AND SHE USED THE SAME BOTTLE WITH T
     Route: 047
     Dates: start: 20240124, end: 20240202
  3. LATANOPROST [Concomitant]
     Active Substance: LATANOPROST
     Indication: Glaucoma
     Dosage: ONCE A DAY IN THE EVENING
  4. LORAZEPAM [Concomitant]
     Active Substance: LORAZEPAM
     Indication: Sleep disorder
     Dosage: AT BEDTIME
  5. LOSARTAN [Concomitant]
     Active Substance: LOSARTAN
     Indication: Hypertension

REACTIONS (1)
  - Eye pain [Recovered/Resolved]

NARRATIVE: CASE EVENT DATE: 20240110
